FAERS Safety Report 7991794 (Version 2)
Quarter: 2013Q4

REPORT INFORMATION
  Report Type: Spontaneous
  Country: US (occurrence: US)
  Receive Date: 20110615
  Receipt Date: 20131230
  Transmission Date: 20140711
  Serious: Yes (Other)
  Sender: FDA-Public Use
  Company Number: US-BAYER-2011-050096

PATIENT
  Age: 30 Year
  Sex: Female

DRUGS (7)
  1. YAZ [Suspect]
     Dosage: UNK
     Dates: start: 20080929, end: 20090616
  2. YASMIN [Suspect]
     Dosage: UNK
     Dates: start: 20080929, end: 20090616
  3. OCELLA [Suspect]
     Dosage: UNK
     Dates: start: 20080929, end: 20090616
  4. CEFACLOR [Concomitant]
     Dosage: 500 MG, UNK
     Route: 048
     Dates: start: 20090302
  5. FLUTICASONE [Concomitant]
     Dosage: 50 ?G, UNK
     Route: 045
     Dates: start: 20090302
  6. FLOVENT [Concomitant]
     Dosage: 44 ?G, UNK
     Dates: start: 20090302
  7. PROTONIX [Concomitant]
     Dosage: 20 MG, UNK
     Route: 048
     Dates: start: 20090601

REACTIONS (6)
  - Gallbladder injury [None]
  - Biliary dyskinesia [None]
  - Pain [None]
  - Injury [Unknown]
  - Emotional distress [Unknown]
  - Anxiety [Unknown]
